FAERS Safety Report 7692034-9 (Version None)
Quarter: 2011Q3

REPORT INFORMATION
  Report Type: 
  Country: None (occurrence: None)
  Receive Date: 20110818
  Receipt Date: 20110808
  Transmission Date: 20111222
  Serious: Yes (Hospitalization)
  Sender: FDA-Public Use
  Company Number: US-BAXTER-2011BH025884

PATIENT
  Age: 61 Year
  Sex: Female

DRUGS (1)
  1. DIANEAL [Suspect]
     Indication: PERITONEAL DIALYSIS
     Route: 033

REACTIONS (7)
  - HAEMATOMA [None]
  - POST PROCEDURAL INFECTION [None]
  - IMPAIRED HEALING [None]
  - FALL [None]
  - INFECTION [None]
  - OEDEMA PERIPHERAL [None]
  - PAIN [None]
